FAERS Safety Report 11987860 (Version 3)
Quarter: 2017Q2

REPORT INFORMATION
  Report Type: Spontaneous
  Country: IN (occurrence: IN)
  Receive Date: 20160202
  Receipt Date: 20170602
  Transmission Date: 20170829
  Serious: Yes (Hospitalization)
  Sender: FDA-Public Use
  Company Number: IN-BAUSCH-BL-2016-002198

PATIENT
  Age: 45 Year
  Sex: Male

DRUGS (2)
  1. METRONIDAZOLE. [Suspect]
     Active Substance: METRONIDAZOLE
     Indication: LIVER ABSCESS
     Route: 042
  2. METRONIDAZOLE. [Suspect]
     Active Substance: METRONIDAZOLE
     Route: 048

REACTIONS (1)
  - Neurotoxicity [Recovering/Resolving]
